FAERS Safety Report 6078569-3 (Version None)
Quarter: 2009Q1

REPORT INFORMATION
  Report Type: 
  Country: None (occurrence: None)
  Receive Date: 20090212
  Receipt Date: 20090127
  Transmission Date: 20090719
  Serious: Yes (Other)
  Sender: FDA-Public Use
  Company Number: 0359

PATIENT
  Sex: Male

DRUGS (3)
  1. METHYLDOPA [Suspect]
     Indication: HYPERTENSION
     Dosage: 750 MG OTHER
     Route: 050
  2. URAPIDIL [Suspect]
     Indication: HYPERTENSION
     Dosage: 240 MG/2400 MG OTHER
     Route: 050
  3. LABETALOL HYDROCHLORIDE [Suspect]
     Indication: HYPERTENSION
     Dosage: 300 MG OTHER
     Route: 050

REACTIONS (11)
  - APGAR SCORE LOW [None]
  - BRADYCARDIA NEONATAL [None]
  - CAESAREAN SECTION [None]
  - CONDITION AGGRAVATED [None]
  - DRUG LEVEL INCREASED [None]
  - HYPOTONIA NEONATAL [None]
  - MATERNAL CONDITION AFFECTING FOETUS [None]
  - MIOSIS [None]
  - NEONATAL DISORDER [None]
  - NEONATAL RESPIRATORY DEPRESSION [None]
  - PREMATURE BABY [None]
